FAERS Safety Report 21534068 (Version 1)
Quarter: 2022Q4

REPORT INFORMATION
  Report Type: Report from Study
  Country: US (occurrence: US)
  Receive Date: 20221101
  Receipt Date: 20221101
  Transmission Date: 20230113
  Serious: No
  Sender: FDA-Public Use
  Company Number: US-ABBVIE-4148746

PATIENT
  Age: 27 Year
  Sex: Female

DRUGS (5)
  1. HUMIRA [Suspect]
     Active Substance: ADALIMUMAB
     Indication: Ankylosing spondylitis
     Dosage: CITRATE FREE?STRENGTH: 40 MG
     Route: 058
     Dates: start: 20220624, end: 20220916
  2. PFIZER-BIONTECH COVID-19 VACCINE [Concomitant]
     Active Substance: TOZINAMERAN
     Indication: COVID-19 immunisation
     Dosage: FIRST DOSE?ONE IN ONCE
     Route: 030
     Dates: start: 202103, end: 202103
  3. PFIZER-BIONTECH COVID-19 VACCINE [Concomitant]
     Active Substance: TOZINAMERAN
     Indication: COVID-19 immunisation
     Dosage: SECOND DOSE?ONE IN ONCE
     Route: 030
     Dates: start: 202103, end: 202103
  4. PFIZER-BIONTECH COVID-19 VACCINE [Concomitant]
     Active Substance: TOZINAMERAN
     Indication: COVID-19 immunisation
     Dosage: FIRST BOOSTER DOSE?ONE IN ONCE
     Route: 030
     Dates: start: 20211110, end: 20211110
  5. PFIZER-BIONTECH COVID-19 VACCINE [Concomitant]
     Active Substance: TOZINAMERAN
     Indication: COVID-19 immunisation
     Dosage: SECOND BOOSTER DOSE?ONE IN ONCE
     Route: 030
     Dates: start: 20220107, end: 20220107

REACTIONS (5)
  - Drug hypersensitivity [Recovering/Resolving]
  - Injection site pruritus [Not Recovered/Not Resolved]
  - Injection site warmth [Unknown]
  - Injection site erythema [Recovering/Resolving]
  - Injection site urticaria [Unknown]

NARRATIVE: CASE EVENT DATE: 20220902
